FAERS Safety Report 6247849-0 (Version None)
Quarter: 2009Q2

REPORT INFORMATION
  Report Type: 
  Country: None (occurrence: None)
  Receive Date: 20090626
  Receipt Date: 20090616
  Transmission Date: 20091009
  Serious: Yes (Hospitalization)
  Sender: FDA-Public Use
  Company Number: DE-ABBOTT-09P-062-0580498-00

PATIENT
  Sex: Female
  Weight: 81 kg

DRUGS (9)
  1. HUMIRA [Suspect]
     Indication: RHEUMATOID ARTHRITIS
     Route: 058
     Dates: start: 20090324, end: 20090505
  2. HUMIRA [Suspect]
     Route: 058
     Dates: start: 20090602
  3. DECORTIN-H [Concomitant]
     Indication: DRUG USE FOR UNKNOWN INDICATION
  4. VIGANTOLETTEN [Concomitant]
     Indication: DRUG USE FOR UNKNOWN INDICATION
  5. BISOPROLOL [Concomitant]
     Indication: DRUG USE FOR UNKNOWN INDICATION
  6. MARCUMAR [Concomitant]
     Indication: DRUG USE FOR UNKNOWN INDICATION
  7. VALORON [Concomitant]
     Indication: DRUG USE FOR UNKNOWN INDICATION
  8. PANTOZOL [Concomitant]
     Indication: DRUG USE FOR UNKNOWN INDICATION
  9. HYDROCHLOROTHIAZID+TRIAMTEREN (DIURETICUM VERLA) [Concomitant]
     Indication: DRUG USE FOR UNKNOWN INDICATION

REACTIONS (1)
  - ORGANISING PNEUMONIA [None]
